FAERS Safety Report 7472739-5 (Version None)
Quarter: 2011Q2

REPORT INFORMATION
  Report Type: 
  Country: None (occurrence: None)
  Receive Date: 20110511
  Receipt Date: 20110503
  Transmission Date: 20111010
  Serious: Yes (Other)
  Sender: FDA-Public Use
  Company Number: US-CEPHALON-2011002190

PATIENT
  Age: 13 Year
  Sex: Female

DRUGS (1)
  1. NUVIGIL [Suspect]
     Route: 048

REACTIONS (3)
  - HYPOTENSION [None]
  - CHEST PAIN [None]
  - DRUG PRESCRIBING ERROR [None]
